FAERS Safety Report 8090588-4 (Version None)
Quarter: 2012Q1

REPORT INFORMATION
  Report Type: 
  Country: None (occurrence: None)
  Receive Date: 20120129
  Receipt Date: 20111111
  Transmission Date: 20120608
  Serious: Yes (Hospitalization)
  Sender: FDA-Public Use
  Company Number: US-ABBOTT-11P-163-0873791-00

PATIENT
  Sex: Female
  Weight: 90.8 kg

DRUGS (6)
  1. HUMIRA [Suspect]
     Dates: start: 20110301
  2. HUMIRA [Suspect]
     Indication: CROHN'S DISEASE
     Dates: start: 20090101, end: 20110301
  3. VITAMIN TAB [Concomitant]
     Indication: VITAMIN SUPPLEMENTATION
  4. CIPROFLOXACIN [Suspect]
     Indication: CROHN'S DISEASE
     Dates: end: 20110901
  5. UNKNOWN INHALERS [Concomitant]
     Indication: ASTHMA
  6. HYDROXYCHLOROQUINE SULFATE [Concomitant]
     Indication: CROHN'S DISEASE

REACTIONS (3)
  - TENDONITIS [None]
  - DRUG INEFFECTIVE [None]
  - ABSCESS INTESTINAL [None]
